FAERS Safety Report 18901781 (Version 1)
Quarter: 2021Q1

REPORT INFORMATION
  Report Type: Spontaneous
  Country: US (occurrence: US)
  Receive Date: 20210217
  Receipt Date: 20210217
  Transmission Date: 20210420
  Serious: Yes (Hospitalization)
  Sender: FDA-Public Use
  Company Number: US-AJANTA PHARMA USA INC.-2106875

PATIENT
  Age: 68 Year
  Sex: Female
  Weight: 60.91 kg

DRUGS (4)
  1. TADALAFIL (ANDA 210392) [Suspect]
     Active Substance: TADALAFIL
  2. ORENITRAM [Concomitant]
     Active Substance: TREPROSTINIL
  3. BOSENTAN. [Suspect]
     Active Substance: BOSENTAN
     Dates: start: 20190628
  4. COUMADIN [Concomitant]
     Active Substance: WARFARIN SODIUM

REACTIONS (2)
  - General physical health deterioration [Unknown]
  - Product substitution issue [Unknown]

NARRATIVE: CASE EVENT DATE: 2019
